FAERS Safety Report 6841193-6 (Version None)
Quarter: 2010Q3

REPORT INFORMATION
  Report Type: 
  Country: None (occurrence: None)
  Receive Date: 20100714
  Receipt Date: 20070904
  Transmission Date: 20110219
  Serious: Yes (Other)
  Sender: FDA-Public Use
  Company Number: US-PFIZER INC-2007052983

PATIENT

DRUGS (1)
  1. CHANTIX [Suspect]

REACTIONS (1)
  - HYPERTENSION [None]
